FAERS Safety Report 9499880 (Version 1)
Quarter: 2013Q3

REPORT INFORMATION
  Report Type: Spontaneous
  Country: CH (occurrence: None)
  Receive Date: 20130903
  Receipt Date: 20130903
  Transmission Date: 20140515
  Serious: Yes (Disabling)
  Sender: FDA-Public Use
  Company Number: 2013P1018856

PATIENT
  Age: 41 Year
  Sex: Female

DRUGS (8)
  1. PLAQUENIL [Suspect]
     Indication: SYSTEMIC LUPUS ERYTHEMATOSUS
     Route: 048
     Dates: start: 200908, end: 201001
  2. NIVAQUINE [Suspect]
     Dates: start: 201002, end: 201205
  3. FLUOXETINE [Concomitant]
  4. ASPIRIN [Concomitant]
  5. PREDNISONE [Concomitant]
  6. PANTOPRAZOLE [Concomitant]
  7. CALCIMAGON -D3 [Concomitant]
  8. CURCUMA [Concomitant]

REACTIONS (7)
  - Visual impairment [None]
  - Visual acuity reduced [None]
  - Papilloedema [None]
  - Visual field defect [None]
  - Toxicity to various agents [None]
  - Vasculitis [None]
  - Macular oedema [None]
